FAERS Safety Report 8772826 (Version 2)
Quarter: 2013Q1

REPORT INFORMATION
  Report Type: Report from Study
  Country: DK (occurrence: DK)
  Receive Date: 20120907
  Receipt Date: 20130321
  Transmission Date: 20140127
  Serious: Yes (Hospitalization)
  Sender: FDA-Public Use
  Company Number: DK-PFIZER INC-2012213133

PATIENT
  Age: 62 Year
  Sex: Female
  Weight: 82 kg

DRUGS (10)
  1. IRINOTECAN HCL [Suspect]
     Indication: COLORECTAL CANCER
     Dosage: 180 MG/M2, DAY ONE EVERY 14 DAYS
     Route: 042
     Dates: start: 20120130
  2. FLUOROURACIL [Suspect]
     Indication: COLORECTAL CANCER METASTATIC
     Dosage: 400 MG/M2, ON DAY ONE
     Route: 040
     Dates: start: 20120130
  3. FLUOROURACIL [Suspect]
     Dosage: 2400 MG/M2, ON DAYS ONE AND TWO EVERY 14 DAYS
     Route: 042
     Dates: start: 20120130
  4. FOLINIC ACID [Suspect]
     Indication: COLORECTAL CANCER
     Dosage: 400 MG/M2, DAY ONE EVERY 14 DAYS
     Route: 042
     Dates: start: 20120130
  5. BLINDED THERAPY [Suspect]
     Indication: COLORECTAL CANCER
     Dosage: EVERY 14 DAYS
     Route: 042
     Dates: start: 20120130
  6. ESOMEPRAZOLE [Concomitant]
     Indication: PROPHYLAXIS
     Dosage: UNK
  7. FUROSEMIDE [Concomitant]
     Indication: PROPHYLAXIS
     Dosage: UNK
  8. PARACETAMOL [Concomitant]
     Indication: PROPHYLAXIS
     Dosage: UNK
  9. BUDESONIDE [Concomitant]
     Indication: PROPHYLAXIS
     Dosage: UNK
  10. TERBUTALIN [Concomitant]
     Indication: PROPHYLAXIS
     Dosage: UNK

REACTIONS (4)
  - Epistaxis [Unknown]
  - Fatigue [Unknown]
  - Dizziness [Unknown]
  - Dyspnoea [Unknown]
